FAERS Safety Report 6228219 (Version 4)
Quarter: 2017Q3

REPORT INFORMATION
  Report Type: Spontaneous
  Country: AU (occurrence: AU)
  Receive Date: 20070131
  Receipt Date: 20170711
  Transmission Date: 20171128
  Serious: Yes (Death, Other)
  Sender: FDA-Public Use
  Company Number: AU-PFIZER INC-2007006525

PATIENT
  Sex: Male
  Weight: 80 kg

DRUGS (6)
  1. SUTENT [Suspect]
     Active Substance: SUNITINIB MALATE
     Indication: NEOPLASM MALIGNANT
  2. DIGOXIN. [Concomitant]
     Active Substance: DIGOXIN
     Dosage: 100 UG, UNK
     Route: 048
  3. SUTENT [Suspect]
     Active Substance: SUNITINIB MALATE
     Indication: RENAL CELL CARCINOMA
     Dosage: 50 MG, 1X/DAY
     Route: 048
     Dates: start: 20061206, end: 20070115
  4. METOPROLOL. [Concomitant]
     Active Substance: METOPROLOL
     Dosage: 50 MG, UNK
     Route: 048
  5. FRUSEMIDE [Concomitant]
     Active Substance: FUROSEMIDE
     Dosage: 40 MG, DAILY
     Route: 048
  6. DIGOXIN. [Concomitant]
     Active Substance: DIGOXIN
     Dosage: 250 UG, UNK
     Route: 048
     Dates: end: 20070131

REACTIONS (8)
  - Pulmonary embolism [Fatal]
  - Dyspnoea [Unknown]
  - Pleural effusion [Fatal]
  - Disease progression [Fatal]
  - Rash [Unknown]
  - Oedema peripheral [Unknown]
  - Cough [Unknown]
  - Pneumonitis [Unknown]
